FAERS Safety Report 20472201 (Version 2)
Quarter: 2022Q1

REPORT INFORMATION
  Report Type: Spontaneous
  Country: CO (occurrence: CO)
  Receive Date: 20220214
  Receipt Date: 20220320
  Transmission Date: 20220423
  Serious: Yes (Hospitalization, Other)
  Sender: FDA-Public Use
  Company Number: CO-PFIZER INC-202200202824

PATIENT
  Age: 68 Year
  Sex: Female

DRUGS (1)
  1. ENBREL [Suspect]
     Active Substance: ETANERCEPT
     Indication: Rheumatoid arthritis
     Dosage: 50 MILLIGRAM, UNSPECIFIED FREQUENCY
     Route: 058
     Dates: end: 2021

REACTIONS (5)
  - Choking [Recovered/Resolved]
  - Haemorrhage [Recovered/Resolved]
  - Thrombosis [Not Recovered/Not Resolved]
  - Product dose omission in error [Unknown]
  - Hypertension [Not Recovered/Not Resolved]

NARRATIVE: CASE EVENT DATE: 20210101
